FAERS Safety Report 9546985 (Version 1)
Quarter: 2013Q2

REPORT INFORMATION
  Report Type: Spontaneous
  Country: US (occurrence: None)
  Receive Date: 20130524
  Receipt Date: 20130524
  Transmission Date: 20140414
  Serious: No
  Sender: FDA-Public Use
  Company Number: PHEH2012US024515

PATIENT
  Age: 49 Year
  Sex: Male

DRUGS (1)
  1. GILENYA (FINGOLIMOD) CAPSULE [Suspect]
     Indication: MULTIPLE SCLEROSIS
     Dates: start: 201105

REACTIONS (2)
  - Back pain [None]
  - Inappropriate schedule of drug administration [None]
